FAERS Safety Report 8119508-0 (Version None)
Quarter: 2012Q1

REPORT INFORMATION
  Report Type: 
  Country: None (occurrence: None)
  Receive Date: 20120207
  Receipt Date: 20120127
  Transmission Date: 20120608
  Serious: Yes (Other)
  Sender: FDA-Public Use
  Company Number: PHHY2012AR008247

PATIENT
  Sex: Female

DRUGS (7)
  1. ATENOLOL [Concomitant]
  2. FULVESTRANT [Concomitant]
  3. AFINITOR [Suspect]
     Route: 048
     Dates: start: 20120101
  4. AROMASIN [Concomitant]
  5. AFINITOR [Suspect]
     Route: 048
     Dates: start: 20110713, end: 20110802
  6. AFINITOR [Suspect]
     Route: 048
     Dates: start: 20110812
  7. AFINITOR [Suspect]
     Indication: BREAST CANCER
     Dosage: 5 MG, DAILY
     Route: 048
     Dates: start: 20110621, end: 20110706

REACTIONS (6)
  - CHOLELITHIASIS [None]
  - ASTHENIA [None]
  - ABDOMINAL PAIN [None]
  - HEPATOTOXICITY [None]
  - DYSPEPSIA [None]
  - FLATULENCE [None]
